FAERS Safety Report 5010052-6 (Version None)
Quarter: 2006Q2

REPORT INFORMATION
  Report Type: 
  Country: None (occurrence: None)
  Receive Date: 20060404
  Receipt Date: 20051115
  Transmission Date: 20061013
  Serious: No
  Sender: FDA-Public Use
  Company Number: US200511001017

PATIENT
  Age: 44 Year
  Sex: Female

DRUGS (4)
  1. CYMBALTA [Suspect]
     Indication: DEPRESSION
     Dosage: SEE IMAGE
     Route: 048
     Dates: start: 20040801
  2. CYMBALTA [Suspect]
     Indication: DEPRESSION
     Dosage: SEE IMAGE
     Route: 048
     Dates: start: 20051114
  3. DARVOCET-N 100 [Concomitant]
  4. .. [Concomitant]

REACTIONS (6)
  - COAGULOPATHY [None]
  - DIZZINESS [None]
  - MUSCLE SPASMS [None]
  - NIGHT SWEATS [None]
  - POST PROCEDURAL HAEMORRHAGE [None]
  - WEIGHT DECREASED [None]
